FAERS Safety Report 10229905 (Version 2)
Quarter: 2014Q2

REPORT INFORMATION
  Report Type: Spontaneous
  Country: DE (occurrence: DE)
  Receive Date: 20140611
  Receipt Date: 20140611
  Transmission Date: 20141212
  Serious: Yes (Hospitalization)
  Sender: FDA-Public Use
  Company Number: DE-ASTRAZENECA-2014SE35608

PATIENT
  Age: 22225 Day
  Sex: Male

DRUGS (14)
  1. MIRTAZAPIN [Suspect]
     Route: 048
     Dates: start: 20120703, end: 20120704
  2. MIRTAZAPIN [Suspect]
     Route: 048
     Dates: start: 20120705, end: 20120709
  3. MIRTAZAPIN [Suspect]
     Route: 048
     Dates: start: 20120710, end: 20120713
  4. MIRTAZAPIN [Suspect]
     Route: 048
     Dates: start: 20120912, end: 20120918
  5. SEROQUEL PROLONG [Suspect]
     Route: 048
     Dates: start: 20120717, end: 20120717
  6. SEROQUEL PROLONG [Suspect]
     Route: 048
     Dates: start: 20120718, end: 20120722
  7. SEROQUEL PROLONG [Suspect]
     Route: 048
     Dates: start: 20120723, end: 20120905
  8. SEROQUEL PROLONG [Suspect]
     Route: 048
     Dates: start: 20120906, end: 20120921
  9. SEROQUEL PROLONG [Suspect]
     Route: 048
     Dates: start: 20120922, end: 20120922
  10. SEROQUEL PROLONG [Suspect]
     Route: 048
     Dates: start: 20120923, end: 20120923
  11. DOMINAL [Concomitant]
     Route: 048
  12. PANTOZOL [Concomitant]
     Route: 048
     Dates: end: 20120818
  13. PANTOZOL [Concomitant]
     Route: 048
     Dates: start: 20120819
  14. SPIRIVA [Concomitant]
     Route: 048

REACTIONS (5)
  - Restless legs syndrome [Recovered/Resolved]
  - Pain in extremity [Unknown]
  - Abdominal pain [Unknown]
  - Sleep disorder [Unknown]
  - Nightmare [Unknown]
